FAERS Safety Report 9798785 (Version 2)
Quarter: 2014Q1

REPORT INFORMATION
  Report Type: Spontaneous
  Country: US (occurrence: US)
  Receive Date: 20140106
  Receipt Date: 20140106
  Transmission Date: 20141002
  Serious: No
  Sender: FDA-Public Use
  Company Number: US-GILEAD-2010-0029693

PATIENT
  Age: 47 Year
  Sex: Male

DRUGS (2)
  1. LETAIRIS [Suspect]
     Indication: PULMONARY ARTERIAL HYPERTENSION
     Route: 048
     Dates: start: 20100122
  2. LETAIRIS [Suspect]
     Route: 048
     Dates: start: 20091223, end: 20100122

REACTIONS (1)
  - Hepatic enzyme increased [Not Recovered/Not Resolved]
